FAERS Safety Report 10245161 (Version 2)
Quarter: 2014Q2

REPORT INFORMATION
  Report Type: Spontaneous
  Country: JP (occurrence: JP)
  Receive Date: 20140618
  Receipt Date: 20140618
  Transmission Date: 20141212
  Serious: Yes (Other)
  Sender: FDA-Public Use
  Company Number: JP-DSJP-DSJ-2014-03076

PATIENT
  Sex: 0

DRUGS (7)
  1. OLMETEC TABLETS 20MG [Suspect]
     Indication: HYPERTENSION
     Dosage: 10 MG, QD
     Route: 048
     Dates: start: 20070123, end: 20090330
  2. OLMETEC TABLETS 20MG [Suspect]
     Dosage: 20 MG, QD
     Route: 048
     Dates: start: 20090331, end: 20140204
  3. NORVASC [Concomitant]
     Indication: HYPERTENSION
     Dosage: 5 MG, QD
     Route: 048
     Dates: start: 2001
  4. SELBEX [Concomitant]
     Indication: GASTRIC ULCER
     Dosage: 50 MG, BID
     Route: 048
     Dates: start: 2001
  5. GASTER D [Concomitant]
     Indication: GASTRIC ULCER
     Dosage: 10 MG, QD
     Route: 048
     Dates: start: 2001
  6. RHYTHMY [Concomitant]
     Indication: INSOMNIA
     Dosage: 2 MG, QD
     Route: 048
     Dates: start: 2002
  7. SELARA [Concomitant]
     Dosage: UNK
     Route: 065
     Dates: start: 201001, end: 201207

REACTIONS (2)
  - Diarrhoea [Recovered/Resolved]
  - Weight decreased [Recovered/Resolved]
